FAERS Safety Report 8616394-7 (Version None)
Quarter: 2012Q3

REPORT INFORMATION
  Report Type: 
  Country: None (occurrence: None)
  Receive Date: 20120823
  Receipt Date: 20120820
  Transmission Date: 20120928
  Serious: Yes (Hospitalization)
  Sender: FDA-Public Use
  Company Number: ES-AMGEN-ESPCT2012052521

PATIENT
  Age: 49 Year
  Sex: Male

DRUGS (4)
  1. FLUOROURACIL [Concomitant]
     Dosage: UNK
     Dates: start: 20120507
  2. VECTIBIX [Suspect]
     Indication: COLORECTAL CANCER
     Dosage: UNK
     Dates: start: 20120507
  3. LEUCOVORIN CALCIUM [Concomitant]
     Dosage: UNK
     Dates: start: 20120507
  4. IRINOTECAN HYDROCHLORIDE [Concomitant]
     Dosage: UNK
     Dates: start: 20120507

REACTIONS (1)
  - CHEMOTHERAPY [None]
